FAERS Safety Report 6422718-1 (Version None)
Quarter: 2009Q4

REPORT INFORMATION
  Report Type: 
  Country: None (occurrence: None)
  Receive Date: 20091102
  Receipt Date: 20091022
  Transmission Date: 20100525
  Serious: Yes (Hospitalization, Other)
  Sender: FDA-Public Use
  Company Number: AT-JNJFOC-20091007097

PATIENT
  Age: 24 Year
  Sex: Male
  Weight: 130 kg

DRUGS (2)
  1. RISPERDAL [Suspect]
     Indication: SCHIZOID PERSONALITY DISORDER
     Route: 048
  2. SERTRALINE HYDROCHLORIDE [Suspect]
     Indication: DRUG USE FOR UNKNOWN INDICATION
     Route: 065

REACTIONS (2)
  - POLYDIPSIA [None]
  - WEIGHT INCREASED [None]
